FAERS Safety Report 20852974 (Version 1)
Quarter: 2022Q2

REPORT INFORMATION
  Report Type: Spontaneous
  Country: JP (occurrence: JP)
  Receive Date: 20220520
  Receipt Date: 20220520
  Transmission Date: 20220721
  Serious: Yes (Death)
  Sender: FDA-Public Use
  Company Number: JP-SAKK-2022SA179450AA

PATIENT
  Age: 16 Year
  Sex: Male
  Weight: 20 kg

DRUGS (1)
  1. CEREZYME [Suspect]
     Active Substance: IMIGLUCERASE
     Indication: Gaucher^s disease
     Dosage: 1200 U, QOW
     Route: 041
     Dates: end: 202204

REACTIONS (2)
  - Gaucher^s disease [Fatal]
  - Condition aggravated [Fatal]
